FAERS Safety Report 19861849 (Version 1)
Quarter: 2021Q3

REPORT INFORMATION
  Report Type: Report from Study
  Country: CA (occurrence: CA)
  Receive Date: 20210920
  Receipt Date: 20210920
  Transmission Date: 20211014
  Serious: Yes (Other)
  Sender: FDA-Public Use
  Company Number: CA-OTSUKA-2021_032016

PATIENT
  Sex: Female

DRUGS (1)
  1. CEDAZURIDINE AND DECITABINE [Suspect]
     Active Substance: CEDAZURIDINE\DECITABINE
     Indication: MYELODYSPLASTIC SYNDROME
     Dosage: UNK
     Route: 065
     Dates: start: 20210825

REACTIONS (6)
  - Eye haemorrhage [Unknown]
  - Contusion [Unknown]
  - Haemoglobin abnormal [Unknown]
  - Transfusion [Unknown]
  - Platelet disorder [Unknown]
  - Platelet transfusion [Unknown]
